FAERS Safety Report 13329674 (Version 1)
Quarter: 2017Q1

REPORT INFORMATION
  Report Type: Spontaneous
  Country: FR (occurrence: FR)
  Receive Date: 20170313
  Receipt Date: 20170313
  Transmission Date: 20170428
  Serious: Yes (Other)
  Sender: FDA-Public Use
  Company Number: FR-009507513-1703FRA004199

PATIENT
  Age: 69 Year
  Sex: Male

DRUGS (3)
  1. CILASTATIN SODIUM (+) IMIPENEM [Suspect]
     Active Substance: CILASTATIN SODIUM\IMIPENEM
     Dosage: UNK
     Route: 042
     Dates: start: 20170127, end: 20170208
  2. VANCOMYCINE SANDOZ [Suspect]
     Active Substance: VANCOMYCIN
     Indication: ENTEROCOCCAL INFECTION
     Dosage: UNK
     Route: 042
     Dates: start: 20170123, end: 20170208
  3. CANCIDAS [Suspect]
     Active Substance: CASPOFUNGIN ACETATE
     Dosage: UNK
     Route: 042
     Dates: start: 20170128, end: 20170205

REACTIONS (1)
  - Linear IgA disease [Recovered/Resolved]

NARRATIVE: CASE EVENT DATE: 20170205
